FAERS Safety Report 4727459-4 (Version None)
Quarter: 2005Q3

REPORT INFORMATION
  Report Type: 
  Country: None (occurrence: None)
  Receive Date: 20050725
  Receipt Date: 20050725
  Transmission Date: 20060218
  Serious: Yes (Hospitalization)
  Sender: FDA-Public Use
  Company Number: None

PATIENT
  Age: 57 Year
  Sex: Male

DRUGS (1)
  1. PHENYTOIN [Suspect]
     Dosage: 400MG   QHS   ORAL
     Route: 048

REACTIONS (7)
  - COORDINATION ABNORMAL [None]
  - DRUG LEVEL INCREASED [None]
  - HYPOAESTHESIA [None]
  - NAUSEA [None]
  - NYSTAGMUS [None]
  - VISION BLURRED [None]
  - VOMITING [None]
